FAERS Safety Report 17920316 (Version 5)
Quarter: 2020Q3

REPORT INFORMATION
  Report Type: Spontaneous
  Country: US (occurrence: US)
  Receive Date: 20200620
  Receipt Date: 20200922
  Transmission Date: 20201103
  Serious: No
  Sender: FDA-Public Use
  Company Number: US-GLAXOSMITHKLINE-US2020AMR099839

PATIENT
  Sex: Female

DRUGS (4)
  1. ZEJULA [Suspect]
     Active Substance: NIRAPARIB
     Indication: OVARIAN CANCER
     Dosage: 200 MG, QD, EVERY NIGHT
     Dates: start: 20200529
  2. ZEJULA [Suspect]
     Active Substance: NIRAPARIB
     Dosage: 200 MG, QD
  3. ZEJULA [Suspect]
     Active Substance: NIRAPARIB
     Dosage: 200 MG, QD
  4. ZEJULA [Suspect]
     Active Substance: NIRAPARIB
     Dosage: 200 MG, QD

REACTIONS (15)
  - Pruritus [Unknown]
  - Adverse drug reaction [Recovering/Resolving]
  - Product dose omission issue [Unknown]
  - Blood urine present [Unknown]
  - Chest discomfort [Unknown]
  - Palpitations [Unknown]
  - Hypersensitivity [Unknown]
  - Poor quality sleep [Not Recovered/Not Resolved]
  - Nausea [Unknown]
  - Blood pressure decreased [Unknown]
  - Rash [Recovered/Resolved]
  - Memory impairment [Unknown]
  - Drug monitoring procedure not performed [Unknown]
  - Decreased appetite [Unknown]
  - Heart rate increased [Unknown]
